FAERS Safety Report 8379919 (Version 2)
Quarter: 2013Q3

REPORT INFORMATION
  Report Type: Report from Study
  Country: UG (occurrence: UG)
  Receive Date: 20120131
  Receipt Date: 20130913
  Transmission Date: 20140515
  Serious: Yes (Death, Hospitalization)
  Sender: FDA-Public Use
  Company Number: UG-ABBOTT-12P-165-0895252-00

PATIENT
  Age: 36 Year
  Sex: Female

DRUGS (4)
  1. ALUVIA TABLETS [Suspect]
     Indication: HIV INFECTION
     Route: 048
     Dates: start: 20110411, end: 20120122
  2. TENOFOVIR [Concomitant]
     Indication: HIV INFECTION
     Dates: start: 20110411, end: 20120122
  3. LAMIVUDINE [Concomitant]
     Indication: HIV INFECTION
     Dates: start: 20110411, end: 20120122
  4. DICLOFENAC [Concomitant]
     Indication: SINUSITIS

REACTIONS (3)
  - Neurological symptom [Fatal]
  - Maternal death affecting foetus [Unknown]
  - Acute sinusitis [Unknown]
